FAERS Safety Report 26059096 (Version 1)
Quarter: 2025Q4

REPORT INFORMATION
  Report Type: Spontaneous
  Country: CN (occurrence: CN)
  Receive Date: 20251118
  Receipt Date: 20251118
  Transmission Date: 20260117
  Serious: Yes (Other)
  Sender: NOVARTIS
  Company Number: CN-002147023-NVSC2025CN168797

PATIENT
  Age: 69 Year
  Sex: Male
  Weight: 62 kg

DRUGS (1)
  1. CARBAMAZEPINE [Suspect]
     Active Substance: CARBAMAZEPINE
     Indication: Trigeminal neuralgia
     Dosage: 200 UG, TID
     Route: 048
     Dates: start: 20251015, end: 20251018

REACTIONS (9)
  - Ataxia [Recovering/Resolving]
  - Somnolence [Recovering/Resolving]
  - Cerebral small vessel ischaemic disease [Recovering/Resolving]
  - Cerebral atrophy [Recovering/Resolving]
  - Mastoiditis [Recovering/Resolving]
  - Nasal septum deviation [Recovering/Resolving]
  - Dizziness [Recovering/Resolving]
  - Sinusitis [Recovering/Resolving]
  - Ear infection [Recovering/Resolving]

NARRATIVE: CASE EVENT DATE: 20251018
